FAERS Safety Report 17301061 (Version 8)
Quarter: 2023Q4

REPORT INFORMATION
  Report Type: Report from Study
  Country: US (occurrence: US)
  Receive Date: 20200122
  Receipt Date: 20231107
  Transmission Date: 20240109
  Serious: Yes (Other)
  Sender: FDA-Public Use
  Company Number: US-PFIZER INC-2020015138

PATIENT
  Sex: Female

DRUGS (6)
  1. LYRICA [Suspect]
     Active Substance: PREGABALIN
     Indication: Product used for unknown indication
     Dosage: 75 MG, 3X/DAY
     Route: 048
  2. LYRICA [Suspect]
     Active Substance: PREGABALIN
     Dosage: 75 MG, 2X/DAY
     Route: 048
  3. LYRICA [Suspect]
     Active Substance: PREGABALIN
     Dosage: 75 MG, 4X/DAY
     Route: 048
  4. LYRICA [Suspect]
     Active Substance: PREGABALIN
     Dosage: 3 DF, DAILY
     Route: 065
  5. LYRICA [Suspect]
     Active Substance: PREGABALIN
     Dosage: 4 DF, DAILY
     Route: 065
  6. LYRICA [Suspect]
     Active Substance: PREGABALIN
     Dosage: 1 DOSAGE FORM, QID
     Route: 048

REACTIONS (8)
  - Drug dependence [Unknown]
  - Influenza [Unknown]
  - Anxiety [Unknown]
  - Malaise [Unknown]
  - Headache [Unknown]
  - Intentional product misuse [Unknown]
  - Intentional product use issue [Unknown]
  - Off label use [Unknown]
